FAERS Safety Report 5443334-4 (Version None)
Quarter: 2007Q3

REPORT INFORMATION
  Report Type: 
  Country: None (occurrence: None)
  Receive Date: 20070905
  Receipt Date: 20070828
  Transmission Date: 20080115
  Serious: Yes (Hospitalization)
  Sender: FDA-Public Use
  Company Number: CN-ASTRAZENECA-2007AP05356

PATIENT
  Age: 78 Year
  Sex: Male

DRUGS (1)
  1. SEROQUEL [Suspect]
     Indication: MENTAL DISORDER
     Route: 048
     Dates: start: 20070824, end: 20070824

REACTIONS (3)
  - HAEMATEMESIS [None]
  - MEDICATION ERROR [None]
  - SOMNOLENCE [None]
